FAERS Safety Report 17468451 (Version 3)
Quarter: 2020Q2

REPORT INFORMATION
  Report Type: Spontaneous
  Country: IL (occurrence: IL)
  Receive Date: 20200227
  Receipt Date: 20200406
  Transmission Date: 20200713
  Serious: Yes (Death)
  Sender: FDA-Public Use
  Company Number: IL-ABBVIE-20K-082-3294392-00

PATIENT
  Age: 64 Year
  Sex: Female

DRUGS (1)
  1. MAVIRET [Suspect]
     Active Substance: GLECAPREVIR\PIBRENTASVIR
     Indication: HEPATITIS C
     Route: 048
     Dates: start: 20180901, end: 20181231

REACTIONS (2)
  - Cholestasis [Fatal]
  - Bleeding varicose vein [Fatal]

NARRATIVE: CASE EVENT DATE: 201902
